FAERS Safety Report 4946707-9 (Version None)
Quarter: 2006Q1

REPORT INFORMATION
  Report Type: 
  Country: None (occurrence: None)
  Receive Date: 20060317
  Receipt Date: 20051011
  Transmission Date: 20060701
  Serious: Yes (Hospitalization, Disabling)
  Sender: FDA-Public Use
  Company Number: US-MERCK-0510USA07085

PATIENT
  Age: 54 Year
  Sex: Male
  Weight: 91 kg

DRUGS (10)
  1. VIOXX [Suspect]
     Indication: BACK PAIN
     Route: 048
     Dates: start: 19991112, end: 20040101
  2. VIOXX [Suspect]
     Route: 048
     Dates: start: 20020222, end: 20020222
  3. VIOXX [Suspect]
     Indication: INTERVERTEBRAL DISC DEGENERATION
     Route: 048
     Dates: start: 19991112, end: 20040101
  4. VIOXX [Suspect]
     Route: 048
     Dates: start: 20020222, end: 20020222
  5. TOPROL-XL [Concomitant]
     Route: 065
     Dates: start: 20020223, end: 20020323
  6. PLAVIX [Concomitant]
     Route: 065
     Dates: start: 20010524, end: 20010629
  7. LIPITOR [Concomitant]
     Route: 065
     Dates: start: 20010606
  8. ZOCOR [Concomitant]
     Route: 065
     Dates: start: 20010606
  9. PRAVACHOL [Concomitant]
     Route: 065
     Dates: start: 20010606
  10. SKELAXIN [Concomitant]
     Route: 065
     Dates: start: 20040201

REACTIONS (14)
  - ANGINA UNSTABLE [None]
  - BLOOD CHOLESTEROL INCREASED [None]
  - CORONARY ARTERY DISEASE [None]
  - CORONARY ARTERY OCCLUSION [None]
  - CORONARY ARTERY RESTENOSIS [None]
  - CORONARY ARTERY STENOSIS [None]
  - ERECTILE DYSFUNCTION [None]
  - INTERVERTEBRAL DISC DEGENERATION [None]
  - MYOCARDIAL INFARCTION [None]
  - MYOCARDIAL ISCHAEMIA [None]
  - NON-HODGKIN'S LYMPHOMA [None]
  - PROSTATIC SPECIFIC ANTIGEN INCREASED [None]
  - RASH [None]
  - UPPER RESPIRATORY TRACT INFECTION [None]
